FAERS Safety Report 25065027 (Version 1)
Quarter: 2025Q1

REPORT INFORMATION
  Report Type: Spontaneous
  Country: FR (occurrence: FR)
  Receive Date: 20250311
  Receipt Date: 20250311
  Transmission Date: 20250409
  Serious: Yes (Other)
  Sender: BAYER HEALTHCARE PHARMACEUTICALS INC.
  Company Number: FR-BAYER-2025A030840

PATIENT
  Age: 59 Year
  Sex: Female
  Weight: 40 kg

DRUGS (3)
  1. NEXAVAR [Suspect]
     Active Substance: SORAFENIB
  2. NEXAVAR [Suspect]
     Active Substance: SORAFENIB
  3. NEORAL [Concomitant]
     Active Substance: CYCLOSPORINE

REACTIONS (5)
  - Toxic skin eruption [None]
  - Transplant [None]
  - Transaminases increased [None]
  - Drug intolerance [None]
  - Incorrect dose administered [None]
